FAERS Safety Report 5920944-9 (Version None)
Quarter: 2008Q4

REPORT INFORMATION
  Report Type: 
  Country: None (occurrence: None)
  Receive Date: 20081016
  Receipt Date: 20080729
  Transmission Date: 20090506
  Serious: Yes (Death)
  Sender: FDA-Public Use
  Company Number: US-JNJFOC-20060903236

PATIENT
  Sex: Female

DRUGS (1)
  1. ARESTIN [Suspect]
     Indication: PERIODONTITIS

REACTIONS (2)
  - COMPLETED SUICIDE [None]
  - GENERAL PHYSICAL HEALTH DETERIORATION [None]
